FAERS Safety Report 10094431 (Version 1)
Quarter: 2014Q2

REPORT INFORMATION
  Report Type: Spontaneous
  Country: PT (occurrence: PT)
  Receive Date: 20140422
  Receipt Date: 20140422
  Transmission Date: 20141212
  Serious: Yes (Death, Other)
  Sender: FDA-Public Use
  Company Number: PT-CELGENEUS-130-21880-14041714

PATIENT
  Age: 66 Year
  Sex: Male

DRUGS (11)
  1. REVLIMID [Suspect]
     Indication: PLASMA CELL MYELOMA
     Route: 048
     Dates: start: 201103
  2. REVLIMID [Suspect]
     Route: 048
     Dates: start: 201106
  3. REVLIMID [Suspect]
     Route: 048
     Dates: start: 201211
  4. REVLIMID [Suspect]
     Route: 048
     Dates: start: 201203
  5. DEXAMETHASONE [Concomitant]
     Indication: PLASMA CELL MYELOMA
     Route: 065
     Dates: start: 2008
  6. DEXAMETHASONE [Concomitant]
     Route: 065
     Dates: start: 201103
  7. DEXAMETHASONE [Concomitant]
     Route: 065
     Dates: start: 201106
  8. CYCLOPHOSPHAMIDE [Concomitant]
     Indication: PLASMA CELL MYELOMA
     Route: 065
     Dates: start: 2008
  9. CYCLOPHOSPHAMIDE [Concomitant]
     Route: 065
     Dates: start: 201107
  10. VELCADE [Concomitant]
     Indication: PLASMA CELL MYELOMA
     Route: 065
     Dates: start: 2008
  11. VELCADE [Concomitant]
     Route: 065
     Dates: start: 201307

REACTIONS (7)
  - Sepsis [Fatal]
  - Anaemia [Unknown]
  - Thrombocytopenia [Unknown]
  - Back pain [Unknown]
  - Plasma cell myeloma [Unknown]
  - Infection [Unknown]
  - Fatigue [Unknown]
